FAERS Safety Report 10503222 (Version 4)
Quarter: 2014Q4

REPORT INFORMATION
  Report Type: Report from Study
  Country: DE (occurrence: DE)
  Receive Date: 20141008
  Receipt Date: 20141208
  Transmission Date: 20150528
  Serious: Yes (Hospitalization)
  Sender: FDA-Public Use
  Company Number: DE-AMGEN-DEUNI2014076465

PATIENT
  Age: 47 Year
  Sex: Female
  Weight: 88 kg

DRUGS (3)
  1. ETANERCEPT [Suspect]
     Active Substance: ETANERCEPT
     Indication: PRODUCT USED FOR UNKNOWN INDICATION
     Dosage: 50 MG, WEEKLY
     Route: 065
     Dates: start: 201404, end: 20140512
  2. PSORCUTAN [Concomitant]
     Indication: PSORIASIS
     Dosage: UNK
     Route: 061
  3. IBUPROFEN. [Concomitant]
     Active Substance: IBUPROFEN
     Indication: PSORIATIC ARTHROPATHY
     Dosage: 600 MG, UNK
     Route: 048

REACTIONS (2)
  - Urinary tract infection [Recovered/Resolved]
  - Acute tonsillitis [Recovered/Resolved]

NARRATIVE: CASE EVENT DATE: 20140425
